FAERS Safety Report 24062326 (Version 1)
Quarter: 2024Q3

REPORT INFORMATION
  Report Type: Spontaneous
  Country: FR (occurrence: FR)
  Receive Date: 20240708
  Receipt Date: 20240708
  Transmission Date: 20241016
  Serious: Yes (Other)
  Sender: SANDOZ
  Company Number: None

PATIENT
  Age: 68 Year
  Sex: Male

DRUGS (6)
  1. ONDANSETRON [Suspect]
     Active Substance: ONDANSETRON
     Indication: Prophylaxis of nausea and vomiting
     Dosage: 8 MG
     Route: 042
     Dates: start: 20230109, end: 20230306
  2. OXALIPLATIN [Suspect]
     Active Substance: OXALIPLATIN
     Indication: Colon cancer
     Dosage: 167 MG
     Route: 042
     Dates: start: 20230109, end: 20230320
  3. FLUOROURACIL [Concomitant]
     Active Substance: FLUOROURACIL
     Indication: Colon cancer
     Dosage: 3550 MG
     Route: 042
     Dates: start: 20230109
  4. LEUCOVORIN CALCIUM [Concomitant]
     Active Substance: LEUCOVORIN CALCIUM
     Indication: Colon cancer
     Dosage: 790 MG
     Route: 042
     Dates: start: 20230109
  5. VECTIBIX [Concomitant]
     Active Substance: PANITUMUMAB
     Dosage: 320 MG
     Route: 042
     Dates: start: 20230424
  6. VECTIBIX [Concomitant]
     Active Substance: PANITUMUMAB
     Indication: Colon cancer
     Dosage: 460 MG
     Route: 042
     Dates: start: 20230109, end: 20230123

REACTIONS (4)
  - Pruritus [Recovered/Resolved]
  - Pyrexia [Recovered/Resolved]
  - Abdominal pain [Recovered/Resolved]
  - Hypersensitivity [Recovered/Resolved]

NARRATIVE: CASE EVENT DATE: 20230123
